FAERS Safety Report 7305564-6 (Version None)
Quarter: 2011Q1

REPORT INFORMATION
  Report Type: 
  Country: None (occurrence: None)
  Receive Date: 20110222
  Receipt Date: 20110221
  Transmission Date: 20110831
  Serious: Yes (Life-Threatening, Hospitalization)
  Sender: FDA-Public Use
  Company Number: DE-SANOFI-AVENTIS-2011SA010736

PATIENT
  Age: 67 Year
  Sex: Male
  Weight: 110 kg

DRUGS (4)
  1. MARCUMAR [Concomitant]
     Route: 065
  2. PROPOFOL [Concomitant]
     Indication: SEDATIVE THERAPY
     Route: 042
     Dates: start: 20110118, end: 20110118
  3. MULTAQ [Suspect]
     Indication: ATRIAL FLUTTER
     Route: 048
     Dates: start: 20101201
  4. ULTIVA [Concomitant]
     Indication: SEDATIVE THERAPY
     Route: 042
     Dates: start: 20110118, end: 20110118

REACTIONS (1)
  - HYPOTENSION [None]
